FAERS Safety Report 17030563 (Version 2)
Quarter: 2020Q4

REPORT INFORMATION
  Report Type: Spontaneous
  Country: US (occurrence: US)
  Receive Date: 20191114
  Receipt Date: 20201117
  Transmission Date: 20210113
  Serious: No
  Sender: FDA-Public Use
  Company Number: US-ALLERGAN-1937446US

PATIENT
  Age: 74 Year
  Sex: Female

DRUGS (2)
  1. UNSPECIFIED BLOODPRESSURE MEDICATION [Concomitant]
     Indication: HYPERTENSION
  2. COMBIGAN [Suspect]
     Active Substance: BRIMONIDINE TARTRATE\TIMOLOL MALEATE
     Indication: INTRAOCULAR PRESSURE INCREASED
     Dosage: 2 GTT, Q12H
     Route: 047
     Dates: start: 20190905, end: 20191003

REACTIONS (4)
  - Muscular weakness [Recovered/Resolved]
  - Gait disturbance [Recovered/Resolved]
  - Dizziness postural [Recovered/Resolved]
  - Labelled drug-drug interaction medication error [Unknown]

NARRATIVE: CASE EVENT DATE: 201909
